FAERS Safety Report 25214612 (Version 1)
Quarter: 2025Q2

REPORT INFORMATION
  Report Type: Report from Study
  Country: US (occurrence: US)
  Receive Date: 20250418
  Receipt Date: 20250418
  Transmission Date: 20250717
  Serious: Yes (Hospitalization)
  Sender: BIOVITRUM
  Company Number: US-BIOVITRUM-2025-US-005185

PATIENT
  Age: 36 Year
  Sex: Female

DRUGS (1)
  1. KINERET [Suspect]
     Active Substance: ANAKINRA
     Indication: Product used for unknown indication
     Route: 058
     Dates: start: 20250331

REACTIONS (8)
  - Chest pain [Unknown]
  - Erythema [Unknown]
  - Injection site erythema [Unknown]
  - Injection site bruising [Unknown]
  - Fear of injection [Unknown]
  - Emotional disorder [Unknown]
  - Crying [Unknown]
  - Injection site pain [Unknown]
